FAERS Safety Report 6938918-8 (Version None)
Quarter: 2010Q3

REPORT INFORMATION
  Report Type: 
  Country: None (occurrence: None)
  Receive Date: 20100824
  Receipt Date: 20100816
  Transmission Date: 20110219
  Serious: Yes (Other)
  Sender: FDA-Public Use
  Company Number: B0669850A

PATIENT
  Age: 40 Year
  Sex: Female

DRUGS (2)
  1. VALTREX [Suspect]
     Indication: PRODUCT USED FOR UNKNOWN INDICATION
     Route: 048
     Dates: start: 20100724, end: 20100724
  2. LEVOFLOXACIN [Concomitant]
     Route: 065

REACTIONS (4)
  - DELIRIUM [None]
  - DIZZINESS [None]
  - HEADACHE [None]
  - NAUSEA [None]
